FAERS Safety Report 18131601 (Version 3)
Quarter: 2020Q4

REPORT INFORMATION
  Report Type: Report from Study
  Country: US (occurrence: US)
  Receive Date: 20200810
  Receipt Date: 20201218
  Transmission Date: 20210113
  Serious: Yes (Hospitalization, Other)
  Sender: FDA-Public Use
  Company Number: US-ROCHE-2595832

PATIENT
  Age: 74 Year
  Sex: Male
  Weight: 75.1 kg

DRUGS (6)
  1. PEMETREXED. [Suspect]
     Active Substance: PEMETREXED
     Indication: MESOTHELIOMA MALIGNANT
     Route: 042
     Dates: start: 20200430
  2. ATEZOLIZUMAB. [Suspect]
     Active Substance: ATEZOLIZUMAB
     Indication: PLEURAL MESOTHELIOMA MALIGNANT
     Dosage: 1200MG IV OVER 60 MINUTES ON DAY 1
     Route: 042
     Dates: start: 20200409
  3. CISPLATIN. [Suspect]
     Active Substance: CISPLATIN
     Indication: PLEURAL MESOTHELIOMA MALIGNANT
     Dosage: 75MG/M2 IV OVER 2 HOURS ON DAY 1
     Route: 042
     Dates: start: 20200409
  4. CISPLATIN. [Suspect]
     Active Substance: CISPLATIN
     Indication: MESOTHELIOMA MALIGNANT
     Route: 042
     Dates: start: 20200430
  5. ATEZOLIZUMAB. [Suspect]
     Active Substance: ATEZOLIZUMAB
     Indication: MESOTHELIOMA MALIGNANT
     Route: 042
     Dates: start: 20200430
  6. PEMETREXED. [Suspect]
     Active Substance: PEMETREXED
     Indication: PLEURAL MESOTHELIOMA MALIGNANT
     Dosage: 500MG/M2 IV OVER 10 MINUTES ON DAY 1
     Route: 042
     Dates: start: 20200409

REACTIONS (2)
  - Hypertension [Unknown]
  - Febrile neutropenia [Recovered/Resolved]

NARRATIVE: CASE EVENT DATE: 20200423
